FAERS Safety Report 17968843 (Version 3)
Quarter: 2023Q2

REPORT INFORMATION
  Report Type: Report from Study
  Country: IT (occurrence: None)
  Receive Date: 20200701
  Receipt Date: 20230420
  Transmission Date: 20230722
  Serious: Yes (Hospitalization)
  Sender: FDA-Public Use
  Company Number: IT-ROCHE-2633650

PATIENT
  Age: 51 Year
  Sex: Male
  Weight: 61 kg

DRUGS (7)
  1. ATEZOLIZUMAB [Suspect]
     Active Substance: ATEZOLIZUMAB
     Indication: Colorectal cancer metastatic
     Dosage: DATE OF MOST RECENT ADMINISTRATION PRIOR TO SERIOUS ADVERSE EVENT (SAE): 08/APR/2020, 840 MG?NUMBER
     Route: 041
     Dates: start: 20190625, end: 20200414
  2. BEVACIZUMAB [Suspect]
     Active Substance: BEVACIZUMAB
     Indication: Colorectal cancer metastatic
     Dosage: DATE OF MOST RECENT ADMINISTRATION PRIOR TO SERIOUS ADVERSE EVENT (SAE): 26/MAR/2020 290 MG?NUMBER O
     Route: 042
     Dates: start: 20190625
  3. OXALIPLATIN [Suspect]
     Active Substance: OXALIPLATIN
     Indication: Colorectal cancer metastatic
     Dosage: DATE OF MOST RECENT ADMINISTRATION PRIOR TO SERIOUS ADVERSE EVENT (SAE): 05/DEC/2019, 205 MG?NUMBER
     Route: 042
     Dates: start: 20190625
  4. FLUOROURACIL [Suspect]
     Active Substance: FLUOROURACIL
     Indication: Colorectal cancer metastatic
     Dosage: DATE OF MOST RECENT ADMINISTRATION PRIOR TO SERIOUS ADVERSE EVENT (SAE): 09/APR/2020, 2720 MG?NUMBER
     Route: 042
     Dates: start: 20190625, end: 20200414
  5. IRINOTECAN [Suspect]
     Active Substance: IRINOTECAN
     Indication: Colorectal cancer metastatic
     Dosage: DATE OF MOST RECENT ADMINISTRATION PRIOR TO SERIOUS ADVERSE EVENT (SAE): 05/DEC/2019 205 MG?NUMBER O
     Route: 065
     Dates: start: 20190625
  6. SERETIDE [Concomitant]
     Active Substance: FLUTICASONE PROPIONATE\SALMETEROL XINAFOATE
     Indication: Asthma
     Dosage: 1 PUFF
     Dates: start: 201411
  7. ALFUZOSIN [Concomitant]
     Active Substance: ALFUZOSIN
     Indication: Urinary retention
     Route: 048
     Dates: start: 201911

REACTIONS (1)
  - Superior mesenteric artery dissection [Recovered/Resolved]

NARRATIVE: CASE EVENT DATE: 20200414
